FAERS Safety Report 8233424-5 (Version None)
Quarter: 2012Q1

REPORT INFORMATION
  Report Type: 
  Country: None (occurrence: None)
  Receive Date: 20120326
  Receipt Date: 20120315
  Transmission Date: 20120608
  Serious: Yes (Other)
  Sender: FDA-Public Use
  Company Number: US-CELGENEUS-163-21880-12031859

PATIENT
  Sex: Female
  Weight: 50.394 kg

DRUGS (2)
  1. REVLIMID [Suspect]
     Dosage: 5 MILLIGRAM
     Route: 048
     Dates: start: 20120128, end: 20120223
  2. ALLOPURINOL [Concomitant]
     Route: 065

REACTIONS (5)
  - SWELLING [None]
  - LYMPHADENOPATHY [None]
  - BONE MARROW FAILURE [None]
  - PAIN [None]
  - DYSPNOEA [None]
